FAERS Safety Report 7323580-5 (Version None)
Quarter: 2011Q1

REPORT INFORMATION
  Report Type: 
  Country: None (occurrence: None)
  Receive Date: 20110301
  Receipt Date: 20110223
  Transmission Date: 20110831
  Serious: Yes (Hospitalization)
  Sender: FDA-Public Use
  Company Number: US-KINGPHARMUSA00001-K201100195

PATIENT
  Age: 52 Year
  Sex: Male
  Weight: 78.912 kg

DRUGS (3)
  1. BICILLIN L-A [Suspect]
     Dosage: 1.2 MILLION UNIT, SINGLE
     Route: 030
     Dates: start: 20101026, end: 20101026
  2. XANAX [Concomitant]
     Dosage: 0.5 MG, QHS
     Route: 048
  3. OMEPRAZOLE [Concomitant]
     Dosage: 40 MG, QD
     Route: 048

REACTIONS (4)
  - INJECTION SITE ABSCESS [None]
  - NEURALGIA [None]
  - NEURITIS [None]
  - HYPOAESTHESIA [None]
